FAERS Safety Report 20864000 (Version 1)
Quarter: 2022Q2

REPORT INFORMATION
  Report Type: Spontaneous
  Country: FR (occurrence: FR)
  Receive Date: 20220523
  Receipt Date: 20220523
  Transmission Date: 20220721
  Serious: Yes (Other)
  Sender: FDA-Public Use
  Company Number: None

PATIENT
  Age: 65 Year
  Sex: Male
  Weight: 75 kg

DRUGS (8)
  1. METRONIDAZOLE [Suspect]
     Active Substance: METRONIDAZOLE
     Indication: Colitis
     Dosage: 1500 MG, QD
     Route: 042
     Dates: start: 20210122, end: 20210128
  2. CEFTRIAXONE [Suspect]
     Active Substance: CEFTRIAXONE
     Indication: Colitis
     Dosage: 1 G, QD
     Route: 042
     Dates: start: 20210122, end: 20210202
  3. LOVENOX [Suspect]
     Active Substance: ENOXAPARIN SODIUM
     Indication: Thrombosis prophylaxis
     Dosage: 4000 IU, QD
     Route: 058
     Dates: start: 20210122, end: 20210204
  4. AMIKACIN [Concomitant]
     Active Substance: AMIKACIN
     Indication: Colitis
     Dosage: 1250 MG, QD
     Route: 042
     Dates: start: 20210125, end: 20210125
  5. ASPIRIN DL-LYSINE [Concomitant]
     Active Substance: ASPIRIN DL-LYSINE
     Indication: Ischaemic stroke
     Dosage: 250 MG, QD
     Route: 048
     Dates: start: 20111201
  6. SOTALOL [Concomitant]
     Active Substance: SOTALOL
     Indication: Hypertension
     Dosage: 80 MG, QD
     Route: 048
     Dates: start: 20111201
  7. AUGMENTIN [Concomitant]
     Active Substance: AMOXICILLIN\CLAVULANATE POTASSIUM
     Indication: Colitis
     Dosage: 3 G, QD
     Route: 048
     Dates: start: 20210114, end: 20210121
  8. ALFUZOSIN [Concomitant]
     Active Substance: ALFUZOSIN
     Indication: Pollakiuria
     Dosage: 10 MG, QD
     Route: 048
     Dates: start: 20210128

REACTIONS (2)
  - Vascular purpura [Recovered/Resolved]
  - Rash maculo-papular [Recovered/Resolved]
